FAERS Safety Report 15697532 (Version 3)
Quarter: 2019Q2

REPORT INFORMATION
  Report Type: Report from Study
  Country: None (occurrence: BR)
  Receive Date: 20181207
  Receipt Date: 20190603
  Transmission Date: 20190711
  Serious: Yes (Other)
  Sender: FDA-Public Use
  Company Number: BR-ABBVIE-18K-020-2576210-00

PATIENT
  Sex: Female

DRUGS (2)
  1. METHOTREXATE. [Concomitant]
     Active Substance: METHOTREXATE
     Indication: PRODUCT USED FOR UNKNOWN INDICATION
  2. HUMIRA [Suspect]
     Active Substance: ADALIMUMAB
     Indication: PSORIATIC ARTHROPATHY
     Route: 058
     Dates: start: 20180629, end: 20181123

REACTIONS (15)
  - Pruritus allergic [Recovered/Resolved]
  - Skin texture abnormal [Recovered/Resolved]
  - General physical condition abnormal [Recovered/Resolved]
  - Allergic oedema [Recovered/Resolved]
  - Pertussis [Unknown]
  - Skin weeping [Recovered/Resolved]
  - Facial pain [Recovered/Resolved]
  - Liver disorder [Unknown]
  - Allergic cough [Unknown]
  - Burning sensation [Recovered/Resolved]
  - Secretion discharge [Recovered/Resolved]
  - Hepatic steatosis [Unknown]
  - Dyspnoea [Recovered/Resolved]
  - Adverse event [Unknown]
  - Erythema [Recovered/Resolved]

NARRATIVE: CASE EVENT DATE: 2018
